FAERS Safety Report 5564086-3 (Version None)
Quarter: 2007Q4

REPORT INFORMATION
  Report Type: 
  Country: None (occurrence: None)
  Receive Date: 20071217
  Receipt Date: 20071205
  Transmission Date: 20080405
  Serious: Yes (Other)
  Sender: FDA-Public Use
  Company Number: AU-PFIZER INC-2007092061

PATIENT
  Sex: Female
  Weight: 77 kg

DRUGS (4)
  1. DOSTINEX [Suspect]
     Indication: PITUITARY TUMOUR
     Route: 048
  2. DOSTINEX [Suspect]
  3. LEVOTHYROXINE SODIUM [Concomitant]
     Dosage: DAILY DOSE:100MCG
     Route: 048
  4. MINAX [Concomitant]

REACTIONS (3)
  - ARRHYTHMIA [None]
  - ELECTROCARDIOGRAM QT PROLONGED [None]
  - PALPITATIONS [None]
